FAERS Safety Report 6585921-6 (Version None)
Quarter: 2010Q1

REPORT INFORMATION
  Report Type: 
  Country: None (occurrence: None)
  Receive Date: 20100217
  Receipt Date: 20100203
  Transmission Date: 20100710
  Serious: Yes (Congenital Anomaly)
  Sender: FDA-Public Use
  Company Number: FR-PFIZER INC-2010014115

PATIENT

DRUGS (2)
  1. RELPAX [Suspect]
     Route: 064
  2. IBUPROFEN [Suspect]

REACTIONS (2)
  - DRUG EXPOSURE DURING PREGNANCY [None]
  - LIMB HYPOPLASIA CONGENITAL [None]
